FAERS Safety Report 4477465-2 (Version None)
Quarter: 2004Q4

REPORT INFORMATION
  Report Type: 
  Country: None (occurrence: None)
  Receive Date: 20041015
  Receipt Date: 20041012
  Transmission Date: 20050328
  Serious: Yes (Other)
  Sender: FDA-Public Use
  Company Number: 002933

PATIENT
  Age: 69 Year
  Sex: Female

DRUGS (4)
  1. MEDROXYPROGESTERONE ACETATE [Suspect]
     Dosage: ORAL
     Route: 048
     Dates: start: 19870101, end: 19980101
  2. ESTRADIOL [Suspect]
     Dosage: ORAL
     Route: 048
     Dates: start: 19870101, end: 19980101
  3. PROVERA [Suspect]
     Dosage: ORAL
     Route: 048
     Dates: start: 19870101, end: 19980101
  4. MEDROXYPROGESTERONE ACETATE [Suspect]
     Dosage: ORAL
     Route: 048
     Dates: start: 19980101, end: 20030926

REACTIONS (1)
  - BREAST CANCER FEMALE [None]
